FAERS Safety Report 8663967 (Version 3)
Quarter: 2012Q4

REPORT INFORMATION
  Report Type: 
  Country: CZ (occurrence: CZ)
  Receive Date: 20120713
  Receipt Date: 20121011
  Transmission Date: 20130627
  Serious: Yes (Hospitalization, Other)
  Sender: FDA-Public Use
  Company Number: CZ-PFIZER INC-2012166521

PATIENT
  Age: 7 Year
  Sex: Male

DRUGS (3)
  1. DEXAMETHASONE SODIUM PHOSPHATE [Suspect]
     Indication: IMMUNOSUPPRESSION
     Dosage: (10 mg/m2/day in a declining dose
  2. ETOPOSIDE [Suspect]
     Indication: IMMUNOSUPPRESSION
     Dosage: 10x150 mg/m2
  3. CYCLOSPORINE [Suspect]
     Indication: IMMUNOSUPPRESSION
     Dosage: 6 mg/kg/day

REACTIONS (4)
  - Ventricular arrhythmia [Recovered/Resolved]
  - Hypertrophic cardiomyopathy [Recovered/Resolved]
  - Leishmaniasis [Recovered/Resolved]
  - Drug ineffective [Unknown]
